FAERS Safety Report 17191013 (Version 1)
Quarter: 2019Q4

REPORT INFORMATION
  Report Type: Spontaneous
  Country: GB (occurrence: GB)
  Receive Date: 20191223
  Receipt Date: 20191223
  Transmission Date: 20200122
  Serious: Yes (Other)
  Sender: FDA-Public Use
  Company Number: GB-TEVA-2019-GB-1155567

PATIENT
  Age: 61 Year
  Sex: Male

DRUGS (5)
  1. NITROLINGUAL [Concomitant]
     Active Substance: NITROGLYCERIN
     Indication: ANGINA PECTORIS
     Dosage: AS REQUIRED
     Route: 048
     Dates: start: 20030531
  2. LIPITOR [Concomitant]
     Active Substance: ATORVASTATIN CALCIUM
     Indication: BLOOD CHOLESTEROL INCREASED
     Dosage: 10 MILLIGRAM PER DAY
     Route: 048
     Dates: start: 20030531
  3. ISOSORBIDE MONONITRATE. [Concomitant]
     Active Substance: ISOSORBIDE MONONITRATE
     Indication: ANGINA PECTORIS
     Dosage: 1 DOSAGE FORMS DAILY; 1 DOSAGE FORM, ONE IN THE MORNING
     Route: 048
     Dates: start: 20041206
  4. CARVEDILOL. [Suspect]
     Active Substance: CARVEDILOL
     Dosage: 12.5 MILLIGRAM
     Route: 048
     Dates: start: 20070623, end: 20070709
  5. DILTIAZEM HYDROCHLORIDE. [Concomitant]
     Active Substance: DILTIAZEM HYDROCHLORIDE
     Indication: ANGINA PECTORIS
     Dosage: 120 MILLIGRAM PER DAY
     Route: 048
     Dates: start: 20030531

REACTIONS (1)
  - Peripheral swelling [Recovering/Resolving]
